FAERS Safety Report 20033070 (Version 3)
Quarter: 2023Q4

REPORT INFORMATION
  Report Type: Spontaneous
  Country: IT (occurrence: IT)
  Receive Date: 20211104
  Receipt Date: 20231113
  Transmission Date: 20240110
  Serious: Yes (Other)
  Sender: FDA-Public Use
  Company Number: IT-AMGEN-ITASP2021171963

PATIENT

DRUGS (7)
  1. XGEVA [Suspect]
     Active Substance: DENOSUMAB
     Indication: Prophylaxis
     Dosage: UNK
     Route: 065
  2. XGEVA [Suspect]
     Active Substance: DENOSUMAB
     Indication: Metastases to bone
  3. ATEZOLIZUMAB [Concomitant]
     Active Substance: ATEZOLIZUMAB
     Indication: Non-small cell lung cancer
  4. AVELUMAB [Concomitant]
     Active Substance: AVELUMAB
     Indication: Non-small cell lung cancer
  5. DURVALUMAB [Concomitant]
     Active Substance: DURVALUMAB
     Indication: Non-small cell lung cancer
  6. NIVOLUMAB [Concomitant]
     Active Substance: NIVOLUMAB
     Indication: Non-small cell lung cancer
  7. PEMBROLIZUMAB [Concomitant]
     Active Substance: PEMBROLIZUMAB
     Indication: Non-small cell lung cancer

REACTIONS (9)
  - Pathological fracture [Unknown]
  - Osteonecrosis of jaw [Unknown]
  - Spinal compression fracture [Unknown]
  - Metastases to bone [Unknown]
  - Renal disorder [Unknown]
  - Infusion related reaction [Unknown]
  - Hypocalcaemia [Unknown]
  - Acute phase reaction [Unknown]
  - Bone lesion [Unknown]
